FAERS Safety Report 6355930-0 (Version None)
Quarter: 2009Q3

REPORT INFORMATION
  Report Type: 
  Country: None (occurrence: None)
  Receive Date: 20090911
  Receipt Date: 20090911
  Transmission Date: 20100115
  Serious: Yes (Other)
  Sender: FDA-Public Use
  Company Number: None

PATIENT
  Age: 84 Year
  Sex: Female
  Weight: 78.9259 kg

DRUGS (2)
  1. CIPROFLOXACIN HCL [Suspect]
     Indication: CELLULITIS
     Dosage: 500 MG 4 X A DAY            7 DAYS
     Dates: start: 20090704
  2. CIPROFLOXACIN HCL [Suspect]
     Indication: SWELLING
     Dosage: 500 MG 4 X A DAY            7 DAYS
     Dates: start: 20090704

REACTIONS (4)
  - DIARRHOEA [None]
  - EMOTIONAL DISTRESS [None]
  - FEAR [None]
  - HAEMORRHOIDS [None]
